FAERS Safety Report 7221613-8 (Version None)
Quarter: 2011Q1

REPORT INFORMATION
  Report Type: 
  Country: None (occurrence: None)
  Receive Date: 20110112
  Receipt Date: 20110106
  Transmission Date: 20110831
  Serious: Yes (Hospitalization, Other)
  Sender: FDA-Public Use
  Company Number: US-ROCHE-731153

PATIENT
  Sex: Male
  Weight: 95.3 kg

DRUGS (2)
  1. ASPIRIN [Concomitant]
     Indication: HEADACHE
  2. ACCUTANE [Suspect]
     Indication: ACNE
     Route: 065
     Dates: start: 19860101, end: 19870101

REACTIONS (3)
  - INTESTINAL OBSTRUCTION [None]
  - GASTROINTESTINAL INJURY [None]
  - CROHN'S DISEASE [None]
